FAERS Safety Report 9307199 (Version 2)
Quarter: 2015Q1

REPORT INFORMATION
  Report Type: Spontaneous
  Country: US (occurrence: US)
  Receive Date: 20130524
  Receipt Date: 20150304
  Transmission Date: 20150721
  Serious: Yes (Hospitalization, Other)
  Sender: FDA-Public Use
  Company Number: US-ROCHE-1227905

PATIENT
  Age: 74 Year
  Sex: Female

DRUGS (12)
  1. FOSAMAX [Suspect]
     Active Substance: ALENDRONATE SODIUM
     Route: 048
     Dates: start: 20051226, end: 20071008
  2. BONIVA [Suspect]
     Active Substance: IBANDRONATE SODIUM
     Route: 048
     Dates: start: 20110430, end: 20120125
  3. FOSAMAX [Suspect]
     Active Substance: ALENDRONATE SODIUM
     Indication: OSTEOPOROSIS
     Route: 048
     Dates: start: 2000, end: 2007
  4. FOSAMAX [Suspect]
     Active Substance: ALENDRONATE SODIUM
     Route: 048
     Dates: start: 20051115
  5. BONIVA [Suspect]
     Active Substance: IBANDRONATE SODIUM
     Route: 048
     Dates: start: 20101028
  6. BONIVA [Suspect]
     Active Substance: IBANDRONATE SODIUM
     Route: 048
     Dates: start: 20101229
  7. FOSAMAX [Suspect]
     Active Substance: ALENDRONATE SODIUM
     Route: 048
     Dates: start: 20001015, end: 20010519
  8. BONIVA [Suspect]
     Active Substance: IBANDRONATE SODIUM
     Route: 048
     Dates: start: 20080801, end: 20100708
  9. BONIVA [Suspect]
     Active Substance: IBANDRONATE SODIUM
     Route: 048
     Dates: start: 20101129
  10. BONIVA [Suspect]
     Active Substance: IBANDRONATE SODIUM
     Indication: OSTEOPOROSIS
     Route: 048
     Dates: start: 2008, end: 2011
  11. BONIVA [Suspect]
     Active Substance: IBANDRONATE SODIUM
     Route: 048
     Dates: start: 20080128, end: 20080414
  12. FOSAMAX [Suspect]
     Active Substance: ALENDRONATE SODIUM
     Route: 048
     Dates: start: 20010622, end: 20040228

REACTIONS (4)
  - Low turnover osteopathy [Unknown]
  - Anxiety [Unknown]
  - Femur fracture [Unknown]
  - Stress fracture [Unknown]

NARRATIVE: CASE EVENT DATE: 20120530
